FAERS Safety Report 19996260 (Version 1)
Quarter: 2021Q4

REPORT INFORMATION
  Report Type: Spontaneous
  Country: BR (occurrence: BR)
  Receive Date: 20211025
  Receipt Date: 20211025
  Transmission Date: 20220304
  Serious: Yes (Hospitalization)
  Sender: FDA-Public Use
  Company Number: BR-PFIZER INC-202101392679

PATIENT
  Age: 85 Year
  Sex: Male
  Weight: 79.15 kg

DRUGS (4)
  1. MEROPENEM [Suspect]
     Active Substance: MEROPENEM
     Indication: Clostridial infection
     Dosage: 500 MG, 12/12 HOURS
  2. DAPTOMYCIN [Suspect]
     Active Substance: DAPTOMYCIN
     Indication: Clostridial infection
     Dosage: 500 MG, EVERY 48 HOURS
  3. RIFAMPIN [Suspect]
     Active Substance: RIFAMPIN
     Indication: Clostridial infection
     Dosage: UNK
  4. METRONIDAZOLE [Suspect]
     Active Substance: METRONIDAZOLE
     Dosage: UNK

REACTIONS (5)
  - Rash [Recovering/Resolving]
  - Pyrexia [Unknown]
  - Pruritus [Unknown]
  - Oral disorder [Unknown]
  - Hypotension [Unknown]

NARRATIVE: CASE EVENT DATE: 20200729
